FAERS Safety Report 6184569-5 (Version None)
Quarter: 2009Q2

REPORT INFORMATION
  Report Type: 
  Country: None (occurrence: None)
  Receive Date: 20090508
  Receipt Date: 20090504
  Transmission Date: 20091009
  Serious: Yes (Other)
  Sender: FDA-Public Use
  Company Number: US-MERCK-0905USA00450

PATIENT
  Age: 70 Year
  Sex: Female

DRUGS (4)
  1. SINGULAIR [Suspect]
     Route: 048
     Dates: start: 20040101
  2. ADVAIR HFA [Suspect]
     Indication: ASTHMA
     Dates: start: 20060201
  3. VENTOLIN [Suspect]
     Route: 065
  4. XALATAN [Concomitant]
     Route: 065

REACTIONS (7)
  - ARTHRITIS [None]
  - CATARACT [None]
  - GLAUCOMA [None]
  - HERPES ZOSTER [None]
  - IMMUNE SYSTEM DISORDER [None]
  - RENAL CYST [None]
  - THROAT IRRITATION [None]
